FAERS Safety Report 5871844-4 (Version None)
Quarter: 2008Q3

REPORT INFORMATION
  Report Type: 
  Country: None (occurrence: None)
  Receive Date: 20080904
  Receipt Date: 20080904
  Transmission Date: 20090109
  Serious: Yes (Hospitalization)
  Sender: FDA-Public Use
  Company Number: None

PATIENT
  Sex: Male
  Weight: 86.4 kg

DRUGS (3)
  1. DOCETAXEL [Suspect]
     Dosage: 152 MG
  2. PREDNISONE TAB [Suspect]
     Dosage: 10 MG
  3. GOSERELIN [Concomitant]

REACTIONS (7)
  - DEHYDRATION [None]
  - DIARRHOEA [None]
  - GASTROENTERITIS RADIATION [None]
  - HYPERGLYCAEMIA [None]
  - LEUKOPENIA [None]
  - NEUTROPENIA [None]
  - WEIGHT DECREASED [None]
